FAERS Safety Report 5656263-8 (Version None)
Quarter: 2008Q1

REPORT INFORMATION
  Report Type: 
  Country: None (occurrence: None)
  Receive Date: 20080305
  Receipt Date: 20080227
  Transmission Date: 20080703
  Serious: Yes (Death, Other)
  Sender: FDA-Public Use
  Company Number: 2008S1000035

PATIENT
  Age: 5 Day
  Sex: Male
  Weight: 0.88 kg

DRUGS (16)
  1. NITRIC OXIDE [Suspect]
     Indication: LUNG DISORDER
     Dosage: 5 PPM; CONT; INH
     Route: 055
     Dates: start: 20080209, end: 20080219
  2. NITRIC OXIDE [Suspect]
     Indication: PROPHYLAXIS
     Dosage: 5 PPM; CONT; INH
     Route: 055
     Dates: start: 20080209, end: 20080219
  3. NITRIC OXIDE [Suspect]
  4. HYDROCORTISONE [Concomitant]
  5. NORADRENALINE [Concomitant]
  6. FENTANYL CITRATE [Concomitant]
  7. SEROALBUMIN [Concomitant]
  8. BLOOD TRANSFUSION, AUXILIARY PRODUCTS [Concomitant]
  9. CEFOTAXIME [Concomitant]
  10. GENTAMICIN [Concomitant]
  11. PHENOBARBITAL TAB [Concomitant]
  12. MIDAZOLAM HCL [Concomitant]
  13. DOPAMINE HCL [Concomitant]
  14. DOBUTAMINE [Concomitant]
  15. INSULIN [Concomitant]
  16. SODIUM BICARBONATE [Concomitant]

REACTIONS (3)
  - BLOOD PRESSURE DECREASED [None]
  - BRADYCARDIA NEONATAL [None]
  - CEREBRAL HAEMORRHAGE [None]
